FAERS Safety Report 15523306 (Version 1)
Quarter: 2018Q4

REPORT INFORMATION
  Report Type: Spontaneous
  Country: US (occurrence: US)
  Receive Date: 20181015
  Receipt Date: 20181015
  Transmission Date: 20190205
  Serious: No
  Sender: FDA-Public Use
  Company Number: None

PATIENT
  Age: 67 Year
  Sex: Female

DRUGS (1)
  1. SIROLIMUS TAB 1MG [Suspect]
     Active Substance: SIROLIMUS
     Indication: TRANSPLANT
     Route: 048
     Dates: start: 20180926

REACTIONS (2)
  - Fatigue [None]
  - Blood pressure increased [None]

NARRATIVE: CASE EVENT DATE: 20181012
